FAERS Safety Report 14351618 (Version 1)
Quarter: 2018Q1

REPORT INFORMATION
  Report Type: Report from Study
  Country: JP (occurrence: JP)
  Receive Date: 20180104
  Receipt Date: 20180104
  Transmission Date: 20180509
  Serious: Yes (Hospitalization)
  Sender: FDA-Public Use
  Company Number: JP-CELLTRION INC.-2017JP000874

PATIENT

DRUGS (8)
  1. PENTASA [Concomitant]
     Active Substance: MESALAMINE
     Indication: COLITIS ULCERATIVE
     Dosage: 4000 MG/DAY
     Route: 065
     Dates: start: 20170106
  2. INFLIXIMAB BS FOR I.V. INFUSION100 MG [NK] [Suspect]
     Active Substance: INFLIXIMAB
     Indication: COLITIS ULCERATIVE
     Dosage: 275 MG/BODY/DAY
     Route: 042
     Dates: start: 20170116, end: 20170116
  3. REMICADE [Suspect]
     Active Substance: INFLIXIMAB
     Dosage: UNK
     Route: 065
     Dates: start: 20170227, end: 20170227
  4. REMICADE [Suspect]
     Active Substance: INFLIXIMAB
     Indication: COLITIS ULCERATIVE
     Dosage: UNK
     Route: 065
     Dates: start: 20170130, end: 20170130
  5. PREDONINE [Concomitant]
     Active Substance: PREDNISOLONE
     Indication: COLITIS ULCERATIVE
     Dosage: 60 MG/DAY[WITH SUBSEQUENT TAPERING])
     Route: 065
     Dates: start: 20170106, end: 20170220
  6. ELNEOPA NO.2 [Concomitant]
     Active Substance: AMINO ACIDS\CARBOHYDRATES\ELECTROLYTES NOS\VITAMINS
     Indication: COLITIS ULCERATIVE
     Dosage: 2000 ML, DAILY
     Dates: start: 20170113, end: 20170120
  7. ELNEOPA NO.2 [Concomitant]
     Active Substance: AMINO ACIDS\CARBOHYDRATES\ELECTROLYTES NOS\VITAMINS
     Dosage: 2000 ML, DAILY
     Dates: start: 20170121, end: 20170129
  8. ELNEOPA NO.1 [Concomitant]
     Indication: COLITIS ULCERATIVE
     Dosage: 2000 ML, DAILY
     Dates: start: 20170111, end: 20170112

REACTIONS (2)
  - Mesenteric vein thrombosis [Recovered/Resolved]
  - Hepatic steatosis [Recovered/Resolved]

NARRATIVE: CASE EVENT DATE: 20170118
